FAERS Safety Report 9522661 (Version 1)
Quarter: 2013Q1

REPORT INFORMATION
  Report Type: Spontaneous
  Country: US (occurrence: None)
  Receive Date: 20130305
  Receipt Date: 20130305
  Transmission Date: 20140127
  Serious: Yes (Other)
  Sender: FDA-Public Use
  Company Number: 163-21880-12072824

PATIENT
  Age: 72 Year
  Sex: Male
  Weight: 63.5 kg

DRUGS (4)
  1. REVLIMID (LENALIDOMIDE) (15 MILLIGRAM, CAPSULES) [Suspect]
     Indication: PLASMA CELL MYELOMA
     Dosage: 15 MG, 15MG 2X WEEKLY (AFTER DIALYSIS) FOR 3 WKS., PO
     Route: 048
     Dates: start: 20120620
  2. FOLIC ACID (FOLIC ACID) (UNKNOWN) [Concomitant]
  3. ACYCLOVIR (ACICLOVIR) (UNKNOWN) [Concomitant]
  4. DEXAMETHASONE (DEXAMETHASONE) (UNKNOWN) [Concomitant]

REACTIONS (4)
  - Haemoglobin decreased [None]
  - Neuropathy peripheral [None]
  - Muscle spasms [None]
  - Weight decreased [None]
